FAERS Safety Report 5298334-4 (Version None)
Quarter: 2007Q2

REPORT INFORMATION
  Report Type: 
  Country: None (occurrence: None)
  Receive Date: 20070416
  Receipt Date: 20070404
  Transmission Date: 20071010
  Serious: Yes (Other)
  Sender: FDA-Public Use
  Company Number: CA-PFIZER INC-2007014883

PATIENT
  Sex: Female

DRUGS (4)
  1. LYRICA [Suspect]
     Indication: COMPLEX REGIONAL PAIN SYNDROME
     Route: 048
  2. MORPHINE [Suspect]
     Indication: PAIN
  3. AMITRIPTYLINE HCL [Suspect]
  4. HYDROMORPHONE HCL [Suspect]

REACTIONS (3)
  - BEDRIDDEN [None]
  - SKIN LESION [None]
  - URTICARIA [None]
